FAERS Safety Report 18774605 (Version 1)
Quarter: 2021Q1

REPORT INFORMATION
  Report Type: Report from Study
  Country: PL (occurrence: PL)
  Receive Date: 20210122
  Receipt Date: 20210122
  Transmission Date: 20210419
  Serious: Yes (Other)
  Sender: FDA-Public Use
  Company Number: PL-ACCORD-215483

PATIENT

DRUGS (1)
  1. IRINOTECAN ACCORD HEALTHCARE [Suspect]
     Active Substance: IRINOTECAN HYDROCHLORIDE
     Indication: COLORECTAL CANCER

REACTIONS (1)
  - Liver abscess [Recovered/Resolved]
